FAERS Safety Report 9332637 (Version 3)
Quarter: 2013Q3

REPORT INFORMATION
  Report Type: Spontaneous
  Country: AU (occurrence: AU)
  Receive Date: 20130606
  Receipt Date: 20130718
  Transmission Date: 20140515
  Serious: Yes (Hospitalization)
  Sender: FDA-Public Use
  Company Number: AU-UCBSA-087511

PATIENT
  Age: 49 Year
  Sex: Female

DRUGS (7)
  1. CIMZIA [Suspect]
     Indication: RHEUMATOID ARTHRITIS
     Route: 058
     Dates: start: 201303, end: 2013
  2. CIMZIA [Suspect]
     Route: 058
     Dates: start: 201303, end: 2013
  3. CIMZIA [Suspect]
     Indication: RHEUMATOID ARTHRITIS
     Dosage: MAINTENANCE DOSE
     Route: 058
     Dates: start: 2013, end: 201306
  4. CIMZIA [Suspect]
     Dosage: MAINTENANCE DOSE
     Route: 058
     Dates: start: 2013, end: 201306
  5. PREDNISOLONE [Suspect]
     Indication: RHEUMATOID ARTHRITIS
     Route: 048
  6. PANADEINE FORTE [Concomitant]
     Indication: ANALGESIC THERAPY
     Route: 048
  7. SALOFALK [Concomitant]
     Indication: CROHN^S DISEASE

REACTIONS (3)
  - Eczema asteatotic [Recovering/Resolving]
  - Headache [Recovering/Resolving]
  - Dyspnoea [Recovering/Resolving]
